FAERS Safety Report 21771869 (Version 1)
Quarter: 2022Q4

REPORT INFORMATION
  Report Type: Report from Study
  Country: KR (occurrence: KR)
  Receive Date: 20221223
  Receipt Date: 20221223
  Transmission Date: 20230112
  Serious: Yes (Death, Life-Threatening, Other)
  Sender: FDA-Public Use
  Company Number: KR-002147023-NVSC2022KR295002

PATIENT
  Age: 65 Year
  Sex: Female

DRUGS (2)
  1. KYMRIAH [Suspect]
     Active Substance: TISAGENLECLEUCEL
     Indication: Diffuse large B-cell lymphoma
     Dosage: UNK, ONCE/SINGLE
     Route: 042
     Dates: start: 20220913
  2. FLUDARABINE [Concomitant]
     Active Substance: FLUDARABINE PHOSPHATE
     Indication: Chemotherapy
     Dosage: UNK
     Route: 065

REACTIONS (15)
  - Hepatic failure [Fatal]
  - Multiple organ dysfunction syndrome [Unknown]
  - Renal failure [Unknown]
  - Nervous system disorder [Unknown]
  - Diffuse large B-cell lymphoma recurrent [Unknown]
  - Diffuse large B-cell lymphoma [Unknown]
  - Malignant neoplasm progression [Unknown]
  - Cytokine release syndrome [Recovered/Resolved]
  - Pyrexia [Unknown]
  - Hepatotoxicity [Unknown]
  - Cytopenia [Unknown]
  - Thrombocytopenia [Unknown]
  - Neutropenia [Unknown]
  - Neurotoxicity [Unknown]
  - White blood cell count decreased [Unknown]

NARRATIVE: CASE EVENT DATE: 20220901
